FAERS Safety Report 25585394 (Version 1)
Quarter: 2025Q3

REPORT INFORMATION
  Report Type: Other
  Country: CA (occurrence: CA)
  Receive Date: 20250721
  Receipt Date: 20250721
  Transmission Date: 20251020
  Serious: Yes (Other)
  Sender: APOTEX
  Company Number: CA-APOTEX-2021AP045732

PATIENT
  Age: 63 Year
  Sex: Male

DRUGS (4)
  1. DASATINIB [Suspect]
     Active Substance: DASATINIB
     Indication: Product used for unknown indication
     Route: 065
  2. DASATINIB [Suspect]
     Active Substance: DASATINIB
     Route: 065
  3. BOSULIF [Suspect]
     Active Substance: BOSUTINIB MONOHYDRATE
     Indication: Chronic myeloid leukaemia
     Dosage: 200 MILLIGRAM, QD
     Route: 065
  4. BOSULIF [Suspect]
     Active Substance: BOSUTINIB MONOHYDRATE
     Dosage: 300 MILLIGRAM, QD
     Route: 048

REACTIONS (4)
  - Drug intolerance [Unknown]
  - Pulmonary oedema [Unknown]
  - Drug ineffective [Unknown]
  - Hypersensitivity [Unknown]
